FAERS Safety Report 21159558 (Version 11)
Quarter: 2023Q1

REPORT INFORMATION
  Report Type: Spontaneous
  Country: JP (occurrence: JP)
  Receive Date: 20220802
  Receipt Date: 20230330
  Transmission Date: 20230418
  Serious: Yes (Other)
  Sender: FDA-Public Use
  Company Number: JP-ASTELLAS-2022JP011384

PATIENT
  Age: 71 Year
  Sex: Female

DRUGS (5)
  1. PADCEV [Suspect]
     Active Substance: ENFORTUMAB VEDOTIN-EJFV
     Indication: Transitional cell carcinoma
     Dosage: 1.25 MG/KG, ONCE WEEKLY ADMINISTRATION FOR 3 CONSECUTIVE WEEKS AND INTERRUPTION FOR 4TH WEEK
     Route: 041
     Dates: start: 20220719, end: 20221021
  2. PADCEV [Suspect]
     Active Substance: ENFORTUMAB VEDOTIN-EJFV
     Dosage: 1 MG/KG, ONCE WEEKLY ADMINISTRATION FOR 3 CONSECUTIVE WEEKS AND INTERRUPTION FOR 4TH WEEK
     Route: 041
     Dates: start: 20221202, end: 20230324
  3. GLYCOSAMINOGLYCANS [Concomitant]
     Active Substance: GLYCOSAMINOGLYCANS
     Indication: Eczema
     Dosage: UNK UNK, UNKNOWN FREQ.
     Route: 065
     Dates: start: 20221017
  4. RINDERON V [Concomitant]
     Active Substance: BETAMETHASONE VALERATE
     Indication: Eczema
     Dosage: UNK UNK, UNKNOWN FREQ.
     Route: 065
     Dates: start: 20221021
  5. POLARAMINE [Concomitant]
     Active Substance: DEXCHLORPHENIRAMINE MALEATE
     Indication: Eczema
     Dosage: UNK UNK, UNKNOWN FREQ.
     Route: 065

REACTIONS (7)
  - Subarachnoid haemorrhage [Recovered/Resolved]
  - Sialoadenitis [Recovered/Resolved]
  - Nausea [Recovered/Resolved]
  - Conjunctivitis [Recovered/Resolved]
  - Taste disorder [Recovered/Resolved]
  - Eczema [Recovered/Resolved]
  - Pneumonia [Recovered/Resolved]

NARRATIVE: CASE EVENT DATE: 20220719
